FAERS Safety Report 5485938-9 (Version None)
Quarter: 2007Q4

REPORT INFORMATION
  Report Type: 
  Country: None (occurrence: None)
  Receive Date: 20071012
  Receipt Date: 20070927
  Transmission Date: 20080405
  Serious: Yes (Hospitalization)
  Sender: FDA-Public Use
  Company Number: CIP07001490

PATIENT
  Age: 80 Year
  Sex: Female

DRUGS (5)
  1. RISEDRONATE SODIUM [Suspect]
     Indication: OSTEOPOROSIS
     Dosage: 2.5 MG DAILY, ORAL
     Route: 048
     Dates: end: 20070713
  2. CANDESARTAN CILEXETIL [Concomitant]
  3. PRAVASTATIN [Concomitant]
  4. NILZIPIN (NITRENDIPINE) [Concomitant]
  5. SIGMART (NICORANDIL) [Concomitant]

REACTIONS (16)
  - ALBUMIN GLOBULIN RATIO DECREASED [None]
  - ALPHA GLOBULIN INCREASED [None]
  - BLOOD ALBUMIN DECREASED [None]
  - BLOOD CHOLINESTERASE DECREASED [None]
  - IMMUNOGLOBULINS INCREASED [None]
  - MONOCYTE COUNT INCREASED [None]
  - NEUTROPHIL COUNT INCREASED [None]
  - OSTEOMYELITIS [None]
  - PAIN IN JAW [None]
  - PERIODONTAL DISEASE [None]
  - PLATELET COUNT INCREASED [None]
  - PROTEIN TOTAL DECREASED [None]
  - RED BLOOD CELL COUNT DECREASED [None]
  - SECONDARY SEQUESTRUM [None]
  - TOOTH EXTRACTION [None]
  - ZINC SULPHATE TURBIDITY INCREASED [None]
